FAERS Safety Report 6883935-X (Version None)
Quarter: 2010Q3

REPORT INFORMATION
  Report Type: 
  Country: None (occurrence: None)
  Receive Date: 20100729
  Receipt Date: 20100719
  Transmission Date: 20110219
  Serious: Yes (Death, Other)
  Sender: FDA-Public Use
  Company Number: FR-CUBIST-2010S1000494

PATIENT

DRUGS (2)
  1. CUBICIN [Suspect]
     Indication: PRODUCT USED FOR UNKNOWN INDICATION
  2. IMIPENEM AND CILASTATIN [Suspect]
     Indication: PRODUCT USED FOR UNKNOWN INDICATION

REACTIONS (3)
  - ACUTE FEBRILE NEUTROPHILIC DERMATOSIS [None]
  - METASTATIC MALIGNANT MELANOMA [None]
  - TOXIC SKIN ERUPTION [None]
